FAERS Safety Report 7593462-2 (Version None)
Quarter: 2011Q3

REPORT INFORMATION
  Report Type: 
  Country: None (occurrence: None)
  Receive Date: 20110706
  Receipt Date: 20110621
  Transmission Date: 20111222
  Serious: Yes (Other)
  Sender: FDA-Public Use
  Company Number: US-JNJFOC-20110304401

PATIENT
  Sex: Female
  Weight: 63.28 kg

DRUGS (3)
  1. ZOCOR [Concomitant]
     Indication: HYPERLIPIDAEMIA
  2. ROLAIDS EXTRA  STRENGTH SOFTCHEWS CHERRY [Suspect]
     Indication: DYSPEPSIA
     Route: 048
     Dates: start: 20100801, end: 20110304
  3. LEVOXYL [Concomitant]
     Indication: THYROID DISORDER

REACTIONS (5)
  - GASTRITIS [None]
  - HEADACHE [None]
  - GASTRIC DISORDER [None]
  - PRODUCT QUALITY ISSUE [None]
  - FATIGUE [None]
